FAERS Safety Report 23268535 (Version 12)
Quarter: 2025Q4

REPORT INFORMATION
  Report Type: Spontaneous
  Country: US (occurrence: US)
  Receive Date: 20231206
  Receipt Date: 20251217
  Transmission Date: 20260118
  Serious: Yes (Other)
  Sender: CSL BEHRING
  Company Number: US-BEH-2023166118

PATIENT
  Age: 49 Year
  Sex: Female

DRUGS (6)
  1. HAEGARDA [Suspect]
     Active Substance: HUMAN C1-ESTERASE INHIBITOR
     Indication: Hereditary angioedema
     Dosage: 4000 IU, BIW
     Route: 058
     Dates: start: 201801
  2. HAEGARDA [Suspect]
     Active Substance: HUMAN C1-ESTERASE INHIBITOR
     Indication: Prophylaxis
     Dosage: 4000 IU, BIW
     Route: 058
     Dates: start: 20180103
  3. TAKHZYRO [Suspect]
     Active Substance: LANADELUMAB-FLYO
     Dosage: UNK
     Route: 065
  4. SODIUM CHLORIDE [Concomitant]
     Active Substance: SODIUM CHLORIDE
     Dosage: 5 ML
  5. STERILE WATER [Concomitant]
     Active Substance: WATER
     Dosage: 50 ML
  6. RUCONEST [Concomitant]
     Active Substance: CONESTAT ALFA

REACTIONS (41)
  - Hereditary angioedema [Recovered/Resolved]
  - Hereditary angioedema [Recovered/Resolved]
  - Hereditary angioedema [Unknown]
  - Hereditary angioedema [Recovered/Resolved]
  - Hereditary angioedema [Unknown]
  - Hereditary angioedema [Unknown]
  - Hereditary angioedema [Unknown]
  - Hereditary angioedema [Unknown]
  - Hereditary angioedema [Recovered/Resolved]
  - Hereditary angioedema [Unknown]
  - Hereditary angioedema [Unknown]
  - Hereditary angioedema [Unknown]
  - Hereditary angioedema [Unknown]
  - Hereditary angioedema [Unknown]
  - Hereditary angioedema [Unknown]
  - Hereditary angioedema [Unknown]
  - Hereditary angioedema [Unknown]
  - Hereditary angioedema [Unknown]
  - Hereditary angioedema [Unknown]
  - Hereditary angioedema [Unknown]
  - Hereditary angioedema [Unknown]
  - Hereditary angioedema [Unknown]
  - Hereditary angioedema [Unknown]
  - Hereditary angioedema [Unknown]
  - Hereditary angioedema [Unknown]
  - Hereditary angioedema [Unknown]
  - Hereditary angioedema [Unknown]
  - Hereditary angioedema [Unknown]
  - Hereditary angioedema [Unknown]
  - Hereditary angioedema [Unknown]
  - Hereditary angioedema [Unknown]
  - Hereditary angioedema [Unknown]
  - Hereditary angioedema [Unknown]
  - Hereditary angioedema [Unknown]
  - Hereditary angioedema [Unknown]
  - Hereditary angioedema [Recovered/Resolved]
  - Hereditary angioedema [Unknown]
  - Hereditary angioedema [Unknown]
  - Hepatic enzyme increased [Unknown]
  - Therapy change [Unknown]
  - Therapy change [Unknown]

NARRATIVE: CASE EVENT DATE: 20231103
